FAERS Safety Report 7005520-1 (Version None)
Quarter: 2010Q3

REPORT INFORMATION
  Report Type: 
  Country: None (occurrence: None)
  Receive Date: 20100917
  Receipt Date: 20100910
  Transmission Date: 20110219
  Serious: Yes (Life-Threatening)
  Sender: FDA-Public Use
  Company Number: 2010US003521

PATIENT
  Age: 71 Year
  Sex: Male

DRUGS (5)
  1. AMBISOME [Suspect]
     Indication: BRONCHOPULMONARY ASPERGILLOSIS
     Dosage: 100 MG, UID/QD, IV NOS; 200 MG, UID/QD, IV NOS
     Route: 042
     Dates: start: 20100727, end: 20100811
  2. AMBISOME [Suspect]
     Indication: BRONCHOPULMONARY ASPERGILLOSIS
     Dosage: 100 MG, UID/QD, IV NOS; 200 MG, UID/QD, IV NOS
     Route: 042
     Dates: start: 20100820, end: 20100821
  3. VFEND [Concomitant]
  4. COLDRIN (CLOFEDANOL HYDROCHLORIDE) [Concomitant]
  5. AGENTS FOR PEPTIC ULCER [Concomitant]

REACTIONS (5)
  - ACUTE CORONARY SYNDROME [None]
  - ELECTROCARDIOGRAM QT PROLONGED [None]
  - ELECTROLYTE IMBALANCE [None]
  - LOSS OF CONSCIOUSNESS [None]
  - VENTRICULAR FIBRILLATION [None]
